FAERS Safety Report 25160704 (Version 1)
Quarter: 2025Q2

REPORT INFORMATION
  Report Type: Spontaneous
  Country: CN (occurrence: CN)
  Receive Date: 20250404
  Receipt Date: 20250404
  Transmission Date: 20250716
  Serious: Yes (Hospitalization)
  Sender: JIANGSU HENGRUI
  Company Number: CN-JIANGSU HENGRUI PHARMACEUTICALS CO., LTD.-H2025208249

PATIENT
  Age: 63 Year
  Weight: 53 kg

DRUGS (1)
  1. PACLITAXEL [Suspect]
     Active Substance: PACLITAXEL
     Indication: Pancreatic carcinoma

REACTIONS (3)
  - Abdominal pain [Recovering/Resolving]
  - Arthralgia [Recovering/Resolving]
  - Myelosuppression [Recovering/Resolving]
